FAERS Safety Report 4609111-9 (Version None)
Quarter: 2005Q2

REPORT INFORMATION
  Report Type: 
  Country: None (occurrence: None)
  Receive Date: 20050301
  Receipt Date: 20041202
  Transmission Date: 20051028
  Serious: Yes (Hospitalization)
  Sender: FDA-Public Use
  Company Number: 240312

PATIENT
  Age: 91 Year
  Sex: Female
  Weight: 70.7 kg

DRUGS (1)
  1. PRANDIN [Suspect]
     Indication: DIABETES MELLITUS
     Dosage: 0. 5MG TID PER ORAL
     Route: 048

REACTIONS (1)
  - IDIOPATHIC THROMBOCYTOPENIC PURPURA [None]
